FAERS Safety Report 5958671-4 (Version None)
Quarter: 2008Q4

REPORT INFORMATION
  Report Type: 
  Country: None (occurrence: None)
  Receive Date: 20081119
  Receipt Date: 20081105
  Transmission Date: 20090506
  Serious: Yes (Hospitalization)
  Sender: FDA-Public Use
  Company Number: A0734198A

PATIENT
  Age: 8 Month
  Sex: Male
  Weight: 7 kg

DRUGS (3)
  1. BLINDED VACCINE [Suspect]
     Route: 030
     Dates: start: 20080317, end: 20080317
  2. TICE BCG [Suspect]
     Route: 023
     Dates: start: 20071025, end: 20071025
  3. HEPATITIS B VACCINE [Concomitant]
     Route: 030
     Dates: start: 20071025, end: 20071025

REACTIONS (12)
  - BRONCHIOLITIS [None]
  - COUGH [None]
  - CRYING [None]
  - DEHYDRATION [None]
  - DIARRHOEA [None]
  - DYSPNOEA [None]
  - GASTROENTERITIS [None]
  - INTERCOSTAL RETRACTION [None]
  - LACRIMAL DISORDER [None]
  - SKIN TURGOR DECREASED [None]
  - VOMITING [None]
  - WHEEZING [None]
